FAERS Safety Report 24619643 (Version 1)
Quarter: 2024Q4

REPORT INFORMATION
  Report Type: Spontaneous
  Country: US (occurrence: US)
  Receive Date: 20241114
  Receipt Date: 20241114
  Transmission Date: 20250114
  Serious: Yes (Other)
  Sender: JOHNSON AND JOHNSON
  Company Number: US-JNJFOC-20241129129

PATIENT
  Age: 59 Year
  Sex: Male

DRUGS (1)
  1. ERLEADA [Suspect]
     Active Substance: APALUTAMIDE
     Indication: Product used for unknown indication
     Dosage: 60MG 4 TABLETS ONCE DAILY
     Route: 048
     Dates: start: 20240619

REACTIONS (1)
  - Aortic rupture [Recovered/Resolved]

NARRATIVE: CASE EVENT DATE: 20241024
